FAERS Safety Report 14895428 (Version 1)
Quarter: 2018Q2

REPORT INFORMATION
  Report Type: Spontaneous
  Country: FR (occurrence: FR)
  Receive Date: 20180515
  Receipt Date: 20180515
  Transmission Date: 20180711
  Serious: Yes (Other)
  Sender: FDA-Public Use
  Company Number: FR-MERCK KGAA-2047753

PATIENT
  Age: 36 Year
  Sex: Female

DRUGS (1)
  1. NOVOTHYROX [Suspect]
     Active Substance: LEVOTHYROXINE SODIUM
     Indication: PRODUCT USED FOR UNKNOWN INDICATION

REACTIONS (29)
  - Anxiety [None]
  - Delirium [None]
  - Choking sensation [None]
  - Personal relationship issue [None]
  - Speech disorder [None]
  - Nervousness [None]
  - Muscle spasms [None]
  - Musculoskeletal stiffness [None]
  - Apathy [None]
  - Loss of personal independence in daily activities [None]
  - Amnesia [None]
  - Anger [None]
  - Depressed mood [None]
  - Memory impairment [None]
  - Feeling abnormal [None]
  - Libido disorder [None]
  - General physical health deterioration [None]
  - Tremor [None]
  - Fatigue [None]
  - Depressive delusion [None]
  - Psychiatric symptom [None]
  - Headache [None]
  - Paranoia [None]
  - Mood swings [None]
  - Suspiciousness [None]
  - Discomfort [None]
  - Abnormal behaviour [None]
  - Social avoidant behaviour [None]
  - Nausea [None]

NARRATIVE: CASE EVENT DATE: 2017
